FAERS Safety Report 9863696 (Version 2)
Quarter: 2014Q2

REPORT INFORMATION
  Report Type: Report from Study
  Country: IL (occurrence: IL)
  Receive Date: 20140203
  Receipt Date: 20140502
  Transmission Date: 20141212
  Serious: Yes (Hospitalization, Other)
  Sender: FDA-Public Use
  Company Number: PHHY2014IL011512

PATIENT
  Age: 68 Year
  Sex: Female

DRUGS (1)
  1. SANDOSTATIN LAR [Suspect]
     Indication: PANCREATIC NEUROENDOCRINE TUMOUR
     Dosage: 30 MG, EVERY FOUR WEEKS (Q4W)
     Route: 030
     Dates: start: 20131010

REACTIONS (3)
  - Nephrolithiasis [Recovered/Resolved]
  - Urinary retention [Recovered/Resolved]
  - Confusional state [Unknown]
